FAERS Safety Report 6305362-6 (Version None)
Quarter: 2009Q3

REPORT INFORMATION
  Report Type: 
  Country: None (occurrence: None)
  Receive Date: 20090810
  Receipt Date: 20090810
  Transmission Date: 20100115
  Serious: No
  Sender: FDA-Public Use
  Company Number: None

PATIENT
  Sex: Male
  Weight: 90.7194 kg

DRUGS (2)
  1. WELLBUTRIN XL [Suspect]
     Indication: DYSTHYMIC DISORDER
     Dosage: 150 MG QD PO
     Route: 048
     Dates: start: 20081110
  2. WELLBUTRIN XL [Suspect]
     Dosage: 300 MG QD PO
     Route: 048
     Dates: start: 20081220

REACTIONS (2)
  - DRUG EFFECT DECREASED [None]
  - PRODUCT SUBSTITUTION ISSUE [None]
